FAERS Safety Report 7362288-7 (Version None)
Quarter: 2011Q1

REPORT INFORMATION
  Report Type: 
  Country: None (occurrence: None)
  Receive Date: 20110318
  Receipt Date: 20110309
  Transmission Date: 20110831
  Serious: Yes (Hospitalization)
  Sender: FDA-Public Use
  Company Number: JP-AMGEN-JPNCT2011006397

PATIENT
  Age: 75 Year
  Sex: Female
  Weight: 53 kg

DRUGS (15)
  1. IRINOTECAN HYDROCHLORIDE [Concomitant]
     Indication: COLORECTAL CANCER
     Route: 041
     Dates: start: 20100817, end: 20101102
  2. ANTIHISTAMINES [Concomitant]
     Indication: PROPHYLAXIS
     Dosage: UNK
     Route: 065
  3. LENDORMIN [Concomitant]
     Dosage: UNK
     Route: 048
  4. DEPAS [Concomitant]
     Dosage: UNK
     Route: 048
  5. LOPEMIN [Concomitant]
     Dosage: UNK
     Route: 048
  6. GASTER D [Concomitant]
     Dosage: UNK
     Route: 048
  7. LASIX [Concomitant]
     Route: 048
  8. PANITUMUMAB [Suspect]
     Dosage: 4 MG/KG, Q2WK
     Route: 041
     Dates: start: 20100907, end: 20101102
  9. MIYA-BM [Concomitant]
     Dosage: UNK
     Route: 048
  10. CORTICOSTEROIDS [Concomitant]
     Indication: PROPHYLAXIS
     Dosage: UNK
     Route: 065
  11. PANITUMUMAB [Suspect]
     Indication: COLORECTAL CANCER
     Dosage: 6 MG/KG, Q2WK
     Route: 041
     Dates: start: 20100817, end: 20100817
  12. FLUOROURACIL [Concomitant]
     Indication: COLORECTAL CANCER
     Route: 040
     Dates: start: 20100817, end: 20101102
  13. FLUOROURACIL [Concomitant]
     Route: 041
     Dates: start: 20100817, end: 20101102
  14. CALCIUM LEVOFOLINATE [Concomitant]
     Indication: COLORECTAL CANCER
     Route: 041
     Dates: start: 20100817, end: 20101102
  15. SENNOSIDE [Concomitant]
     Dosage: UNK
     Route: 048

REACTIONS (3)
  - MALAISE [None]
  - PANCYTOPENIA [None]
  - BLOOD POTASSIUM DECREASED [None]
